FAERS Safety Report 16197553 (Version 2)
Quarter: 2019Q2

REPORT INFORMATION
  Report Type: Report from Study
  Country: US (occurrence: US)
  Receive Date: 20190415
  Receipt Date: 20190424
  Transmission Date: 20190711
  Serious: Yes (Death, Other)
  Sender: FDA-Public Use
  Company Number: US-BRISTOL-MYERS SQUIBB COMPANY-BMS-2019-037068

PATIENT
  Age: 80 Year
  Sex: Male
  Weight: 63.95 kg

DRUGS (2)
  1. NIVOLUMAB [Suspect]
     Active Substance: NIVOLUMAB
     Indication: DIFFUSE LARGE B-CELL LYMPHOMA
     Dosage: 211 MILLIGRAM
     Route: 065
     Dates: start: 20190118, end: 20190329
  2. IPILIMUMAB [Suspect]
     Active Substance: IPILIMUMAB
     Indication: DIFFUSE LARGE B-CELL LYMPHOMA
     Dosage: 70.5 MILLIGRAM
     Route: 065
     Dates: start: 20190118, end: 20190329

REACTIONS (1)
  - Sudden death [Fatal]

NARRATIVE: CASE EVENT DATE: 20190412
